FAERS Safety Report 5434258-7 (Version None)
Quarter: 2007Q3

REPORT INFORMATION
  Report Type: 
  Country: None (occurrence: None)
  Receive Date: 20070831
  Receipt Date: 20070828
  Transmission Date: 20080115
  Serious: Yes (Death, Life-Threatening, Hospitalization)
  Sender: FDA-Public Use
  Company Number: BEWYE695225MAY05

PATIENT
  Age: 72 Year
  Sex: Male
  Weight: 74 kg

DRUGS (2)
  1. GEMTUZUMAB OZOGAMICIN [Suspect]
     Indication: ACUTE MYELOID LEUKAEMIA
     Dosage: 11.6 MG
     Dates: start: 20050217, end: 20050217
  2. GEMTUZUMAB OZOGAMICIN [Suspect]
     Dosage: 11.6 MG
     Dates: start: 20050303, end: 20050303

REACTIONS (6)
  - BRONCHOPULMONARY ASPERGILLOSIS [None]
  - FLUID RETENTION [None]
  - HYPERBILIRUBINAEMIA [None]
  - PANCYTOPENIA [None]
  - SHOCK HAEMORRHAGIC [None]
  - VENOOCCLUSIVE LIVER DISEASE [None]
